FAERS Safety Report 21734776 (Version 4)
Quarter: 2023Q1

REPORT INFORMATION
  Report Type: Report from Study
  Country: FR (occurrence: None)
  Receive Date: 20221215
  Receipt Date: 20230111
  Transmission Date: 20230418
  Serious: Yes (Hospitalization)
  Sender: FDA-Public Use
  Company Number: FR-ROCHE-3237833

PATIENT
  Age: 64 Year
  Sex: Male
  Weight: 80 kg

DRUGS (4)
  1. ATEZOLIZUMAB [Suspect]
     Active Substance: ATEZOLIZUMAB
     Indication: Small cell lung cancer extensive stage
     Route: 041
     Dates: start: 20221128
  2. CARBOPLATIN [Concomitant]
     Active Substance: CARBOPLATIN
     Route: 065
     Dates: start: 20221128
  3. CARBOPLATIN [Concomitant]
     Active Substance: CARBOPLATIN
     Dates: start: 20221107, end: 20221107
  4. ETOPOSIDE [Concomitant]
     Active Substance: ETOPOSIDE
     Dates: start: 20221128

REACTIONS (1)
  - Staphylococcal infection [Not Recovered/Not Resolved]

NARRATIVE: CASE EVENT DATE: 20221202
